FAERS Safety Report 24760046 (Version 1)
Quarter: 2024Q4

REPORT INFORMATION
  Report Type: Spontaneous
  Country: FR (occurrence: FR)
  Receive Date: 20241220
  Receipt Date: 20241220
  Transmission Date: 20250115
  Serious: Yes (Life-Threatening)
  Sender: B BRAUN
  Company Number: FR-B.Braun Medical Inc.-2167513

PATIENT
  Age: 43 Year
  Sex: Male
  Weight: 70 kg

DRUGS (5)
  1. ACETAMINOPHEN [Suspect]
     Active Substance: ACETAMINOPHEN
  2. COCAINE [Suspect]
     Active Substance: COCAINE
  3. ALCOHOL [Suspect]
     Active Substance: ALCOHOL
  4. VALPROATE SODIUM [Suspect]
     Active Substance: VALPROATE SODIUM
  5. OXAZEPAM [Suspect]
     Active Substance: OXAZEPAM

REACTIONS (5)
  - Coma [Unknown]
  - Drug use disorder [Unknown]
  - Substance use disorder [Unknown]
  - Oxygen saturation decreased [Unknown]
  - Vomiting [Unknown]
